FAERS Safety Report 14349348 (Version 4)
Quarter: 2025Q1

REPORT INFORMATION
  Report Type: Spontaneous
  Country: GB (occurrence: GB)
  Receive Date: 20180104
  Receipt Date: 20250319
  Transmission Date: 20250408
  Serious: No
  Sender: ROCHE
  Company Number: GB-NOVPHSZ-PHHY2017GB178092

PATIENT
  Age: 85 Year
  Sex: Female

DRUGS (8)
  1. RITUXIMAB [Interacting]
     Active Substance: RITUXIMAB
     Indication: Chronic lymphocytic leukaemia
     Route: 042
  2. RITUXIMAB [Interacting]
     Active Substance: RITUXIMAB
     Indication: Immunosuppressant drug therapy
  3. ZYDELIG [Interacting]
     Active Substance: IDELALISIB
     Indication: Chronic lymphocytic leukaemia
     Dosage: 150 MG BID
     Route: 048
  4. ZYDELIG [Interacting]
     Active Substance: IDELALISIB
     Indication: Immunosuppressant drug therapy
  5. PREDNISOLONE [Concomitant]
     Active Substance: PREDNISOLONE
  6. PREDNISOLONE [Concomitant]
     Active Substance: PREDNISOLONE
  7. PREDNISOLONE [Concomitant]
     Active Substance: PREDNISOLONE
  8. PREDNISOLONE [Concomitant]
     Active Substance: PREDNISOLONE

REACTIONS (6)
  - Polymyalgia rheumatica [Unknown]
  - Drug interaction [Unknown]
  - Enterocolitis [Unknown]
  - Hepatotoxicity [Unknown]
  - Diarrhoea [Unknown]
  - Pneumonitis [Unknown]
